FAERS Safety Report 7424040-3 (Version None)
Quarter: 2011Q2

REPORT INFORMATION
  Report Type: 
  Country: None (occurrence: None)
  Receive Date: 20110419
  Receipt Date: 20101208
  Transmission Date: 20111010
  Serious: Yes (Hospitalization, Other)
  Sender: FDA-Public Use
  Company Number: US-BAYER-201040711NA

PATIENT
  Age: 25 Year
  Sex: Female
  Weight: 131.52 kg

DRUGS (15)
  1. IBUPROFEN [Concomitant]
  2. SEROQUEL [Concomitant]
  3. YASMIN [Suspect]
     Indication: ACNE
  4. HYDROCODONE [Concomitant]
     Indication: PAIN
     Dosage: UNK
     Dates: start: 20040101
  5. EPIPEN [Concomitant]
  6. LEVEMIR [Concomitant]
  7. CYCLOBENZAPRINE [Concomitant]
  8. TOPAMAX [Concomitant]
     Indication: MIGRAINE
     Dosage: UNK
     Dates: start: 20070101
  9. YAZ [Suspect]
     Indication: PREMENSTRUAL SYNDROME
  10. HUMALOG [Concomitant]
  11. YAZ [Suspect]
     Indication: ACNE
     Dosage: UNK
     Dates: start: 20080201, end: 20080901
  12. INSULIN [Concomitant]
     Indication: DIABETES MELLITUS
     Dosage: UNK
     Dates: start: 20060101
  13. ANTIBIOTICS [Concomitant]
  14. YAZ [Suspect]
     Indication: CONTRACEPTION
  15. LISINOPRIL [Concomitant]
     Dosage: UNK
     Dates: start: 20060101

REACTIONS (4)
  - CHOLECYSTITIS CHRONIC [None]
  - INJURY [None]
  - GALLBLADDER DISORDER [None]
  - GALLBLADDER CHOLESTEROLOSIS [None]
